FAERS Safety Report 13003812 (Version 3)
Quarter: 2017Q1

REPORT INFORMATION
  Report Type: Spontaneous
  Country: IT (occurrence: IT)
  Receive Date: 20161206
  Receipt Date: 20170221
  Transmission Date: 20170428
  Serious: Yes (Death, Other)
  Sender: FDA-Public Use
  Company Number: IT-GILEAD-2016-0245458

PATIENT
  Age: 74 Year
  Sex: Female

DRUGS (6)
  1. HARVONI [Suspect]
     Active Substance: LEDIPASVIR\SOFOSBUVIR
     Indication: HEPATITIS C
     Route: 065
  2. CONTRAMAL [Concomitant]
     Active Substance: TRAMADOL HYDROCHLORIDE
  3. RIVOTRIL [Concomitant]
     Active Substance: CLONAZEPAM
  4. LYRICA [Concomitant]
     Active Substance: PREGABALIN
  5. REBETOL [Suspect]
     Active Substance: RIBAVIRIN
     Indication: HEPATITIS C
     Route: 065
  6. MATRIFEN [Concomitant]
     Active Substance: FENTANYL

REACTIONS (3)
  - Psychomotor retardation [Fatal]
  - Abdominal pain [Fatal]
  - Constipation [Fatal]

NARRATIVE: CASE EVENT DATE: 20151109
